FAERS Safety Report 20902796 (Version 2)
Quarter: 2022Q3

REPORT INFORMATION
  Report Type: Spontaneous
  Country: JP (occurrence: JP)
  Receive Date: 20220601
  Receipt Date: 20220708
  Transmission Date: 20221027
  Serious: Yes (Hospitalization, Other)
  Sender: FDA-Public Use
  Company Number: JP-PFIZER INC-202200753190

PATIENT
  Age: 80 Year
  Sex: Female
  Weight: 38.5 kg

DRUGS (14)
  1. RHEUMATREX [Suspect]
     Active Substance: METHOTREXATE SODIUM
     Indication: Rheumatoid arthritis
     Dosage: 10 MG, WEEKLY (6MG AND 4 MG, EVERY 12 HOURS)
     Route: 048
     Dates: start: 20220406, end: 20220410
  2. FOLIC ACID [Concomitant]
     Active Substance: FOLIC ACID
     Dosage: UNK
     Route: 048
     Dates: start: 20220406, end: 20220410
  3. LEUCOVORIN SODIUM [Concomitant]
     Active Substance: LEUCOVORIN SODIUM
     Dosage: UNK
     Route: 042
     Dates: start: 20220414, end: 20220421
  4. PYRIDOXAL PHOSPHATE [Concomitant]
     Active Substance: PYRIDOXAL PHOSPHATE
     Route: 048
  5. LOXOPROFEN SODIUM [Concomitant]
     Active Substance: LOXOPROFEN SODIUM
     Dosage: UNK
     Route: 048
     Dates: end: 20220415
  6. FAMOTIDINE [Concomitant]
     Active Substance: FAMOTIDINE
  7. ISCOTIN [Concomitant]
     Active Substance: ISONIAZID
     Route: 048
  8. TRANSAMIN [Concomitant]
     Active Substance: TRANEXAMIC ACID
     Route: 048
  9. CRESTOR [Concomitant]
     Active Substance: ROSUVASTATIN CALCIUM
     Route: 048
  10. LEVOFLOXACIN [Concomitant]
     Active Substance: LEVOFLOXACIN
  11. FLUOROMETHOLONE [Concomitant]
     Active Substance: FLUOROMETHOLONE
  12. ALPHAGAN P [Concomitant]
     Active Substance: BRIMONIDINE TARTRATE
  13. RIPASUDIL HYDROCHLORIDE DIHYDRATE [Concomitant]
     Active Substance: RIPASUDIL HYDROCHLORIDE DIHYDRATE
  14. CARTEOLOL HYDROCHLORIDE\LATANOPROST [Concomitant]
     Active Substance: CARTEOLOL HYDROCHLORIDE\LATANOPROST
     Route: 048

REACTIONS (12)
  - Neutropenia [Recovered/Resolved]
  - Myelosuppression [Recovered/Resolved]
  - Drug eruption [Recovered/Resolved]
  - Hypophagia [Recovered/Resolved]
  - Pyrexia [Unknown]
  - Overdose [Unknown]
  - Stomatitis [Recovered/Resolved]
  - Eczema [Unknown]
  - Pruritus [Unknown]
  - Pharyngeal erythema [Unknown]
  - Cheilitis [Unknown]
  - Blister [Unknown]

NARRATIVE: CASE EVENT DATE: 20220401
